FAERS Safety Report 6293696-3 (Version None)
Quarter: 2009Q3

REPORT INFORMATION
  Report Type: 
  Country: None (occurrence: None)
  Receive Date: 20090729
  Receipt Date: 20090721
  Transmission Date: 20100115
  Serious: Yes (Other)
  Sender: FDA-Public Use
  Company Number: 2009SP016108

PATIENT
  Age: 6 Year
  Sex: Male
  Weight: 34 kg

DRUGS (1)
  1. DESLORATADINE [Suspect]
     Indication: HYPERSENSITIVITY
     Dosage: 1.25 MG; QD; PO
     Route: 048
     Dates: start: 20090601, end: 20090614

REACTIONS (6)
  - ABNORMAL BEHAVIOUR [None]
  - EATING DISORDER [None]
  - HYPERAESTHESIA [None]
  - INTENTIONAL SELF-INJURY [None]
  - REACTION TO COLOURING [None]
  - REACTION TO DRUG EXCIPIENTS [None]
